FAERS Safety Report 18982069 (Version 3)
Quarter: 2021Q2

REPORT INFORMATION
  Report Type: Spontaneous
  Country: US (occurrence: US)
  Receive Date: 20210308
  Receipt Date: 20210622
  Transmission Date: 20210717
  Serious: Yes (Hospitalization, Other)
  Sender: FDA-Public Use
  Company Number: US-GLAXOSMITHKLINE-US2021055908

PATIENT
  Age: 74 Year
  Sex: Female

DRUGS (1)
  1. BENLYSTA [Suspect]
     Active Substance: BELIMUMAB
     Indication: SYSTEMIC LUPUS ERYTHEMATOSUS
     Dosage: UNK, ONCE WEEKLY
     Route: 058

REACTIONS (7)
  - Lung disorder [Recovered/Resolved]
  - Incorrect dose administered by product [Unknown]
  - Urinary tract infection [Recovered/Resolved]
  - Product dose omission issue [Unknown]
  - Pneumonia [Recovered/Resolved]
  - Product complaint [Unknown]
  - Feeling abnormal [Unknown]

NARRATIVE: CASE EVENT DATE: 202012
